FAERS Safety Report 8638507 (Version 2)
Quarter: 2012Q4

REPORT INFORMATION
  Report Type: 
  Country: BR (occurrence: BR)
  Receive Date: 20120627
  Receipt Date: 20121008
  Transmission Date: 20130627
  Serious: Yes (Disabling, Other)
  Sender: FDA-Public Use
  Company Number: BR-ASTRAZENECA-2012SE41400

PATIENT
  Age: 86 Year
  Sex: Female
  Weight: 55 kg

DRUGS (5)
  1. CRESTOR [Suspect]
     Indication: BLOOD CHOLESTEROL INCREASED
     Route: 048
     Dates: start: 2007, end: 201204
  2. LAMITOR [Concomitant]
     Route: 048
     Dates: start: 2010
  3. BENICAR ANLO [Concomitant]
     Route: 048
     Dates: start: 2010
  4. PONDERA [Concomitant]
     Indication: DEPRESSION
     Route: 048
     Dates: start: 2010
  5. RISPERDAL [Concomitant]
     Route: 048
     Dates: start: 2010

REACTIONS (7)
  - Parkinson^s disease [Not Recovered/Not Resolved]
  - Cerebral ischaemia [Not Recovered/Not Resolved]
  - Anaemia [Not Recovered/Not Resolved]
  - Dementia Alzheimer^s type [Not Recovered/Not Resolved]
  - Myelodysplastic syndrome [Not Recovered/Not Resolved]
  - Arthralgia [Not Recovered/Not Resolved]
  - Off label use [Recovered/Resolved]
